FAERS Safety Report 26019119 (Version 1)
Quarter: 2025Q4

REPORT INFORMATION
  Report Type: Spontaneous
  Country: US (occurrence: US)
  Receive Date: 20251110
  Receipt Date: 20251110
  Transmission Date: 20260119
  Serious: No
  Sender: AMNEAL
  Company Number: US-AMNEAL PHARMACEUTICALS-2025-AMRX-03926

PATIENT
  Sex: Female

DRUGS (1)
  1. DAPSONE [Suspect]
     Active Substance: DAPSONE
     Indication: Acne
     Dosage: 5 PERCENT
     Route: 061
     Dates: end: 2025

REACTIONS (3)
  - Acne [Recovered/Resolved]
  - Product physical consistency issue [Unknown]
  - Product odour abnormal [Unknown]
